FAERS Safety Report 7661743-X (Version None)
Quarter: 2011Q3

REPORT INFORMATION
  Report Type: 
  Country: None (occurrence: None)
  Receive Date: 20110805
  Receipt Date: 20101027
  Transmission Date: 20111222
  Serious: No
  Sender: FDA-Public Use
  Company Number: US-ABBOTT-10P-163-0681891-00

PATIENT
  Sex: Male

DRUGS (11)
  1. GEMFIBROZIL [Concomitant]
     Indication: BLOOD CHOLESTEROL INCREASED
  2. NIASPAN [Suspect]
     Indication: BLOOD CHOLESTEROL INCREASED
     Dates: start: 20101024
  3. BISOPROLOL-HCT [Concomitant]
     Indication: HYPERTENSION
  4. AMLODIPINE BESYLATE [Concomitant]
     Indication: HYPERTENSION
  5. JANUMET [Concomitant]
     Indication: TYPE 2 DIABETES MELLITUS
     Dosage: 50/1000 MILLIGRAMS
  6. SIMVASTATIN [Concomitant]
     Indication: BLOOD CHOLESTEROL INCREASED
  7. HYDROCHLOROTHIAZIDE [Concomitant]
     Indication: HYPERTENSION
  8. GLIPIZIDE [Concomitant]
     Indication: DIABETES MELLITUS
  9. LISINOPRIL [Concomitant]
     Indication: HYPERTENSION
  10. UNKNOWN SLEEPING AID [Concomitant]
     Indication: SLEEP APNOEA SYNDROME
     Dosage: AT BEDTIME
  11. ASPIRIN [Concomitant]
     Indication: PROPHYLAXIS

REACTIONS (2)
  - MUSCULAR WEAKNESS [None]
  - DIZZINESS [None]
